FAERS Safety Report 10975565 (Version 1)
Quarter: 2015Q2

REPORT INFORMATION
  Report Type: Spontaneous
  Country: US (occurrence: US)
  Receive Date: 20150401
  Receipt Date: 20150401
  Transmission Date: 20150821
  Serious: No
  Sender: FDA-Public Use
  Company Number: US-GLAXOSMITHKLINE-US2015GSK030084

PATIENT
  Sex: Female

DRUGS (10)
  1. IMITREX [Suspect]
     Active Substance: SUMATRIPTAN\SUMATRIPTAN SUCCINATE
  2. ZOCOR [Concomitant]
     Active Substance: SIMVASTATIN
     Dosage: 1 DF, QD
  3. PROAIR HFA [Concomitant]
     Active Substance: ALBUTEROL SULFATE
     Dosage: UNK, PRN
     Route: 048
  4. COREG [Concomitant]
     Active Substance: CARVEDILOL
     Dosage: 1 DF, BID
  5. BUPROPION TABLET [Concomitant]
     Active Substance: BUPROPION
     Dosage: 75 MG, QD
     Route: 048
  6. CUTIVATE [Concomitant]
     Active Substance: FLUTICASONE PROPIONATE
  7. LASIX [Concomitant]
     Active Substance: FUROSEMIDE
     Dosage: 1 DF, QOD
  8. HYDROCORTISONE. [Concomitant]
     Active Substance: HYDROCORTISONE
     Dosage: UNK, BID
  9. CELEBREX [Concomitant]
     Active Substance: CELECOXIB
     Indication: OSTEOARTHRITIS
     Dosage: 1 DF, QD
  10. BONIVA [Concomitant]
     Active Substance: IBANDRONATE SODIUM
     Dosage: 150 MG, CYC

REACTIONS (1)
  - Drug hypersensitivity [Unknown]
